FAERS Safety Report 6951039 (Version 4)
Quarter: 2013Q2

REPORT INFORMATION
  Report Type: Report from Study
  Country: CA (occurrence: CA)
  Receive Date: 20090325
  Receipt Date: 20130603
  Transmission Date: 20140414
  Serious: Yes (Hospitalization, Other)
  Sender: FDA-Public Use
  Company Number: CA-ABBOTT-09P-028-0563572-00

PATIENT
  Age: 49 Year
  Sex: Female
  Weight: 61.29 kg

DRUGS (1)
  1. HUMIRA 40 MG/0.8 ML PEN [Suspect]
     Indication: RHEUMATOID ARTHRITIS
     Route: 058
     Dates: start: 20090220, end: 20090313

REACTIONS (10)
  - Tenosynovitis [Unknown]
  - Localised infection [Recovered/Resolved with Sequelae]
  - Osteomyelitis [Unknown]
  - Infection [Unknown]
  - Pyrexia [Unknown]
  - Chills [Unknown]
  - Musculoskeletal stiffness [Unknown]
  - Dry skin [Unknown]
  - Laceration [Unknown]
  - Joint range of motion decreased [Unknown]
